FAERS Safety Report 17995851 (Version 1)
Quarter: 2020Q3

REPORT INFORMATION
  Report Type: Spontaneous
  Country: DE (occurrence: DE)
  Receive Date: 20200708
  Receipt Date: 20200708
  Transmission Date: 20201103
  Serious: Yes (Hospitalization)
  Sender: FDA-Public Use
  Company Number: NVSC2020DE191203

PATIENT
  Age: 16 Year
  Sex: Male
  Weight: 30 kg

DRUGS (4)
  1. LUMINALE [Concomitant]
     Active Substance: PHENOBARBITAL
     Indication: COORDINATION ABNORMAL
     Dosage: 60 MG, QD (DAILY DOSE: 60 MG MILLGRAM(S) EVERY DAYS 2 SEPARATED DOSES)
     Route: 065
  2. OXCARBAZEPINE. [Suspect]
     Active Substance: OXCARBAZEPINE
     Indication: TOXICITY TO VARIOUS AGENTS
     Dosage: 900 MG, ONCE/SINGLE (DAILY DOSE: 900 MG MILLGRAM(S) EVERY TOTAL)
     Route: 048
  3. OMEPRAZOL [Concomitant]
     Active Substance: OMEPRAZOLE
     Indication: GASTROINTESTINAL DISORDER PROPHYLAXIS
     Dosage: 40 MG, QD (DAILY DOSE: 40 MG MILLGRAM(S) EVERY DAYS 2 SEPARATED DOSES)
     Route: 065
  4. OLANZAPIN [Concomitant]
     Active Substance: OLANZAPINE
     Indication: DISTURBANCE IN SOCIAL BEHAVIOUR
     Dosage: UNK (5MG ? 0 ? 2.5MG)
     Route: 065

REACTIONS (4)
  - Product dispensing issue [Recovered/Resolved]
  - Drug dispensed to wrong patient [Recovered/Resolved]
  - Accidental exposure to product [Recovered/Resolved]
  - Toxicity to various agents [Recovered/Resolved]

NARRATIVE: CASE EVENT DATE: 20180813
